FAERS Safety Report 5515754-0 (Version None)
Quarter: 2007Q4

REPORT INFORMATION
  Report Type: 
  Country: None (occurrence: None)
  Receive Date: 20071114
  Receipt Date: 20071106
  Transmission Date: 20080405
  Serious: Yes (Death, Hospitalization, Other)
  Sender: FDA-Public Use
  Company Number: PHHO2007CA13117

PATIENT
  Age: 62 Year
  Sex: Male

DRUGS (1)
  1. NEORAL [Suspect]
     Indication: RENAL TRANSPLANT
     Dosage: 200 MG/DAILY
     Route: 048
     Dates: start: 20060628, end: 20070731

REACTIONS (14)
  - ATRIAL FIBRILLATION [None]
  - CARDIAC ARREST [None]
  - CENTRAL NERVOUS SYSTEM LESION [None]
  - CHILLS [None]
  - CONFUSIONAL STATE [None]
  - CONVULSION [None]
  - FAECAL INCONTINENCE [None]
  - HEART RATE IRREGULAR [None]
  - HYPOTENSION [None]
  - LYMPHOMA [None]
  - MALAISE [None]
  - MUSCULAR WEAKNESS [None]
  - PYREXIA [None]
  - RESTLESSNESS [None]
